FAERS Safety Report 12106215 (Version 1)
Quarter: 2016Q1

REPORT INFORMATION
  Report Type: Spontaneous
  Country: SA (occurrence: SA)
  Receive Date: 20160223
  Receipt Date: 20160223
  Transmission Date: 20160526
  Serious: Yes (Death, Life-Threatening, Other)
  Sender: FDA-Public Use
  Company Number: SA-SHENZHEN TECHDOW PHARMACEUTICAL CO. LTD-SA-2016TEC0000010

PATIENT

DRUGS (2)
  1. HEPARIN SODIUM INJECTION USP, PRESERVATIVE FREE [Suspect]
     Active Substance: HEPARIN SODIUM
     Indication: VENA CAVA THROMBOSIS
     Dosage: 10-20 UNITS/KG/HR
     Route: 042
  2. HEPARIN SODIUM INJECTION USP, PRESERVATIVE FREE [Suspect]
     Active Substance: HEPARIN SODIUM
     Indication: INTRACARDIAC THROMBUS

REACTIONS (2)
  - Pulmonary embolism [Fatal]
  - Drug ineffective [Fatal]
